FAERS Safety Report 12165400 (Version 4)
Quarter: 2016Q1

REPORT INFORMATION
  Report Type: Report from Study
  Country: US (occurrence: US)
  Receive Date: 20160309
  Receipt Date: 20160317
  Transmission Date: 20160526
  Serious: Yes (Death)
  Sender: FDA-Public Use
  Company Number: US-ABBVIE-16K-163-1577571-00

PATIENT
  Age: 79 Year
  Sex: Male

DRUGS (1)
  1. HUMIRA [Suspect]
     Active Substance: ADALIMUMAB
     Indication: PSORIASIS
     Route: 058
     Dates: start: 20150210, end: 20150316

REACTIONS (4)
  - Upper limb fracture [Fatal]
  - Atrial fibrillation [Fatal]
  - Hepatic necrosis [Fatal]
  - Hip fracture [Fatal]

NARRATIVE: CASE EVENT DATE: 201601
